FAERS Safety Report 22102781 (Version 1)
Quarter: 2023Q1

REPORT INFORMATION
  Report Type: Spontaneous
  Country: US (occurrence: US)
  Receive Date: 20230316
  Receipt Date: 20230316
  Transmission Date: 20230418
  Serious: Yes (Hospitalization, Other)
  Sender: FDA-Public Use
  Company Number: None

PATIENT
  Age: 32 Year
  Sex: Female

DRUGS (8)
  1. PREDNISONE [Suspect]
     Active Substance: PREDNISONE
     Indication: Systemic lupus erythematosus
     Dosage: UNK (HIGH DOSE)
     Route: 065
  2. TERBINAFINE [Suspect]
     Active Substance: TERBINAFINE
     Indication: Tinea pedis
     Dosage: 250 MILLIGRAM, QD
     Route: 048
  3. METHOTREXATE [Suspect]
     Active Substance: METHOTREXATE
     Indication: Systemic lupus erythematosus
     Dosage: UNK
     Route: 065
  4. MYCOPHENOLATE MOFETIL [Suspect]
     Active Substance: MYCOPHENOLATE MOFETIL
     Indication: Systemic lupus erythematosus
     Dosage: UNK
     Route: 065
  5. DAPSONE [Suspect]
     Active Substance: DAPSONE
     Indication: Systemic lupus erythematosus
     Dosage: UNK
     Route: 065
  6. AZATHIOPRINE [Suspect]
     Active Substance: AZATHIOPRINE
     Indication: Systemic lupus erythematosus
     Dosage: UNK
     Route: 065
  7. HYDROXYCHLOROQUINE [Suspect]
     Active Substance: HYDROXYCHLOROQUINE
     Indication: Systemic lupus erythematosus
     Dosage: UNK
     Route: 065
  8. RITUXIMAB [Concomitant]
     Active Substance: RITUXIMAB
     Indication: Systemic lupus erythematosus
     Dosage: UNK
     Route: 042

REACTIONS (4)
  - Psychotic disorder [Recovered/Resolved]
  - Systemic lupus erythematosus [Recovered/Resolved]
  - Drug ineffective [Recovered/Resolved]
  - Off label use [Unknown]
